FAERS Safety Report 10381553 (Version 1)
Quarter: 2014Q3

REPORT INFORMATION
  Report Type: Spontaneous
  Country: US (occurrence: None)
  Receive Date: 20140811
  Receipt Date: 20140811
  Transmission Date: 20150326
  Serious: Yes (Hospitalization)
  Sender: FDA-Public Use
  Company Number: COM-002460

PATIENT
  Age: 81 Year
  Sex: Male
  Weight: 68.04 kg

DRUGS (11)
  1. ASPIRIN 81 MG [Suspect]
     Active Substance: ASPIRIN
     Indication: PAIN
     Dosage: 2 TABLETS, ONCE DAILY,
     Dates: start: 20140720, end: 20140725
  2. SYMBICORT [Concomitant]
     Active Substance: BUDESONIDE\FORMOTEROL FUMARATE DIHYDRATE
  3. DILTIAZEM [Concomitant]
     Active Substance: DILTIAZEM
  4. LOSARTAN [Concomitant]
     Active Substance: LOSARTAN
  5. ALEVE [Concomitant]
     Active Substance: NAPROXEN SODIUM
  6. WARFARIN [Concomitant]
     Active Substance: WARFARIN
  7. TYLENOL [Concomitant]
     Active Substance: ACETAMINOPHEN
  8. VITAMIN D [Concomitant]
     Active Substance: CHOLECALCIFEROL
  9. PROVENTIL [Concomitant]
     Active Substance: ALBUTEROL
  10. FUROSEMIDE. [Concomitant]
     Active Substance: FUROSEMIDE
  11. CRESTOR [Concomitant]
     Active Substance: ROSUVASTATIN CALCIUM

REACTIONS (4)
  - Pain [None]
  - Dyspnoea [None]
  - Asthenia [None]
  - Gastric ulcer [None]

NARRATIVE: CASE EVENT DATE: 20140718
